FAERS Safety Report 9394423 (Version 1)
Quarter: 2013Q3

REPORT INFORMATION
  Report Type: Spontaneous
  Country: US (occurrence: US)
  Receive Date: 20130711
  Receipt Date: 20130711
  Transmission Date: 20140515
  Serious: No
  Sender: FDA-Public Use
  Company Number: US-PFIZER INC-2013201383

PATIENT
  Age: 13 Year
  Sex: 0

DRUGS (1)
  1. GEODON [Suspect]
     Dosage: ALMOST HALF OF THE CONTENT OF 20 MG CAPSULE

REACTIONS (1)
  - Dysphagia [Unknown]
